FAERS Safety Report 8020429-2 (Version None)
Quarter: 2012Q1

REPORT INFORMATION
  Report Type: 
  Country: None (occurrence: None)
  Receive Date: 20120103
  Receipt Date: 20111221
  Transmission Date: 20120608
  Serious: Yes (Death, Hospitalization, Disabling)
  Sender: FDA-Public Use
  Company Number: FR-CELGENEUS-056-21880-11031650

PATIENT
  Sex: Male

DRUGS (3)
  1. REVLIMID [Concomitant]
     Route: 065
     Dates: start: 20070404, end: 20080823
  2. DEXAMETHASONE [Concomitant]
     Route: 065
     Dates: start: 20081001
  3. REVLIMID [Suspect]
     Route: 048
     Dates: start: 20081001, end: 20110301

REACTIONS (1)
  - ACUTE MYELOID LEUKAEMIA [None]
